FAERS Safety Report 6629259-7 (Version None)
Quarter: 2010Q1

REPORT INFORMATION
  Report Type: 
  Country: None (occurrence: None)
  Receive Date: 20100311
  Receipt Date: 20090731
  Transmission Date: 20100710
  Serious: No
  Sender: FDA-Public Use
  Company Number: US-BIOGENIDEC-2009BI023885

PATIENT
  Age: 56 Year
  Sex: Female

DRUGS (4)
  1. AVONEX [Suspect]
     Indication: MULTIPLE SCLEROSIS
     Route: 030
  2. AVONEX [Suspect]
     Route: 030
     Dates: start: 19990101
  3. AVONEX [Suspect]
     Route: 030
  4. TYLENOL-500 [Concomitant]
     Indication: PREMEDICATION

REACTIONS (2)
  - INFLUENZA LIKE ILLNESS [None]
  - MOBILITY DECREASED [None]
